FAERS Safety Report 6833533-9 (Version None)
Quarter: 2010Q3

REPORT INFORMATION
  Report Type: 
  Country: None (occurrence: None)
  Receive Date: 20100712
  Receipt Date: 20070327
  Transmission Date: 20110219
  Serious: No
  Sender: FDA-Public Use
  Company Number: US-PFIZER INC-2007026165

PATIENT
  Sex: Female
  Weight: 66.68 kg

DRUGS (12)
  1. CHANTIX [Suspect]
     Indication: SMOKING CESSATION THERAPY
     Route: 048
     Dates: start: 20070327
  2. LEXAPRO [Concomitant]
     Route: 048
  3. LIPITOR [Concomitant]
     Route: 048
  4. ZETIA [Concomitant]
     Route: 048
  5. XANAX [Concomitant]
     Route: 048
  6. VICODIN ES [Concomitant]
     Route: 048
  7. FIORICET [Concomitant]
     Route: 048
  8. AMBIEN [Concomitant]
     Route: 048
  9. PLAVIX [Concomitant]
     Route: 048
  10. CAPTOPRIL [Concomitant]
     Route: 048
  11. ACETYLSALICYLIC ACID [Concomitant]
     Route: 048
  12. PAXIL [Concomitant]

REACTIONS (1)
  - ANXIETY [None]
